FAERS Safety Report 22321229 (Version 1)
Quarter: 2023Q2

REPORT INFORMATION
  Report Type: Spontaneous
  Country: CN (occurrence: CN)
  Receive Date: 20230515
  Receipt Date: 20230515
  Transmission Date: 20230722
  Serious: Yes (Other)
  Sender: FDA-Public Use
  Company Number: CN-GLAXOSMITHKLINE-CNCH2023APC020094

PATIENT

DRUGS (8)
  1. DICLOFENAC SODIUM [Suspect]
     Active Substance: DICLOFENAC SODIUM
     Indication: Pain
     Dosage: 1 DF, BID
     Route: 048
     Dates: start: 20230412, end: 20230422
  2. DICLOFENAC SODIUM [Suspect]
     Active Substance: DICLOFENAC SODIUM
     Indication: Rib fracture
  3. DICLOFENAC SODIUM [Suspect]
     Active Substance: DICLOFENAC SODIUM
     Indication: Contusion
  4. HERBALS [Suspect]
     Active Substance: HERBALS
     Indication: Pain
     Dosage: 1 DF, QD
     Route: 061
     Dates: start: 20230418, end: 20230422
  5. HERBALS [Suspect]
     Active Substance: HERBALS
     Indication: Rib fracture
  6. HERBALS [Suspect]
     Active Substance: HERBALS
     Indication: Contusion
  7. HERBALS [Suspect]
     Active Substance: HERBALS
     Indication: Rib fracture
     Dosage: 2 DF, TID
     Route: 048
     Dates: start: 20230412, end: 20230422
  8. HERBALS [Suspect]
     Active Substance: HERBALS
     Indication: Contusion

REACTIONS (5)
  - Rash papular [Recovering/Resolving]
  - Pruritus [Recovering/Resolving]
  - Oedema [Recovering/Resolving]
  - Erythema [Recovering/Resolving]
  - Rash maculo-papular [Recovering/Resolving]

NARRATIVE: CASE EVENT DATE: 20230423
